FAERS Safety Report 8030963 (Version 3)
Quarter: 2013Q3

REPORT INFORMATION
  Report Type: Spontaneous
  Country: US (occurrence: US)
  Receive Date: 20110712
  Receipt Date: 20130812
  Transmission Date: 20140515
  Serious: Yes (Death, Hospitalization)
  Sender: FDA-Public Use
  Company Number: US-GLAXOSMITHKLINE-A0893973A

PATIENT
  Age: 83 Year
  Sex: Male
  Weight: 51.4 kg

DRUGS (6)
  1. AVANDIA [Suspect]
     Indication: DIABETES MELLITUS
     Dosage: 4MG PER DAY
     Route: 048
     Dates: start: 20050325, end: 201001
  2. GLYBURIDE [Concomitant]
  3. METFORMIN [Concomitant]
  4. LISINOPRIL [Concomitant]
  5. LEVOTHROID [Concomitant]
  6. GEMFIBROZIL [Concomitant]

REACTIONS (1)
  - Myocardial infarction [Fatal]
